FAERS Safety Report 13946154 (Version 10)
Quarter: 2018Q3

REPORT INFORMATION
  Report Type: Spontaneous
  Country: US (occurrence: US)
  Receive Date: 20170907
  Receipt Date: 20180724
  Transmission Date: 20181010
  Serious: Yes (Other)
  Sender: FDA-Public Use
  Company Number: US-PFIZER INC-2017383167

PATIENT
  Age: 50 Year
  Sex: Male

DRUGS (4)
  1. XELJANZ XR [Suspect]
     Active Substance: TOFACITINIB CITRATE
     Dosage: 11 MG, UNK
     Dates: start: 20180413
  2. XELJANZ XR [Suspect]
     Active Substance: TOFACITINIB CITRATE
     Dosage: 11 MG, UNK
     Dates: start: 201709
  3. XELJANZ XR [Suspect]
     Active Substance: TOFACITINIB CITRATE
     Dosage: 11 MG, UNK
  4. XELJANZ XR [Suspect]
     Active Substance: TOFACITINIB CITRATE
     Dosage: 11 MG, UNK
     Dates: start: 201706, end: 201709

REACTIONS (20)
  - Thrombosis [Unknown]
  - Blood cholesterol increased [Unknown]
  - Headache [Unknown]
  - Hair growth abnormal [Unknown]
  - Lacrimation increased [Unknown]
  - Pulmonary pain [Unknown]
  - Therapeutic response unexpected [Unknown]
  - Mobility decreased [Unknown]
  - Nausea [Unknown]
  - Cough [Not Recovered/Not Resolved]
  - Infection [Unknown]
  - Toothache [Unknown]
  - Gingival pain [Unknown]
  - Rhinorrhoea [Unknown]
  - Abdominal pain upper [Unknown]
  - Inguinal hernia [Unknown]
  - Abdominal hernia [Unknown]
  - Influenza [Unknown]
  - Fungal infection [Unknown]
  - Depressed mood [Unknown]

NARRATIVE: CASE EVENT DATE: 2017
